FAERS Safety Report 6377310-4 (Version None)
Quarter: 2009Q3

REPORT INFORMATION
  Report Type: 
  Country: None (occurrence: None)
  Receive Date: 20090925
  Receipt Date: 20090914
  Transmission Date: 20100115
  Serious: Yes (Hospitalization)
  Sender: FDA-Public Use
  Company Number: DE-NICOBRDEVP-2009-05001

PATIENT
  Sex: Female
  Weight: 65.5 kg

DRUGS (5)
  1. KENTERA (WATSON LABORATORIES) [Suspect]
     Indication: STRESS URINARY INCONTINENCE
     Dosage: 1 PATCH Q 3 DAYS
     Route: 062
     Dates: start: 20090528, end: 20090628
  2. KENTERA (WATSON LABORATORIES) [Suspect]
     Indication: URGE INCONTINENCE
  3. ANTIDEPRESSANTS UNSPECIFIED [Suspect]
     Indication: DEPRESSION
  4. MIRTAZAPINE [Concomitant]
     Indication: DEPRESSION
  5. COPAXONE                           /01410902/ [Concomitant]
     Indication: MULTIPLE SCLEROSIS

REACTIONS (6)
  - APPLICATION SITE PHOTOSENSITIVITY REACTION [None]
  - DISTURBANCE IN ATTENTION [None]
  - DRUG INEFFECTIVE [None]
  - DRUG INTERACTION [None]
  - FATIGUE [None]
  - SEDATION [None]
